FAERS Safety Report 5248445-4 (Version None)
Quarter: 2007Q1

REPORT INFORMATION
  Report Type: 
  Country: None (occurrence: None)
  Receive Date: 20070227
  Receipt Date: 20070221
  Transmission Date: 20070707
  Serious: Yes (Other)
  Sender: FDA-Public Use
  Company Number: US-MERCK-0608USA02225

PATIENT
  Age: 89 Year
  Sex: Female

DRUGS (3)
  1. FOSAMAX [Suspect]
     Indication: OSTEOPOROSIS
     Route: 048
     Dates: start: 19990409, end: 20020101
  2. FOSAMAX [Suspect]
     Route: 048
     Dates: start: 20020101, end: 20030101
  3. FOSAMAX [Suspect]
     Route: 048
     Dates: start: 20030101, end: 20050101

REACTIONS (7)
  - ANXIETY [None]
  - ARTHROPATHY [None]
  - FUNGAL INFECTION [None]
  - OSTEOMYELITIS [None]
  - OSTEONECROSIS [None]
  - UPPER LIMB FRACTURE [None]
  - URINARY TRACT INFECTION [None]
